FAERS Safety Report 7215855-5 (Version None)
Quarter: 2010Q4

REPORT INFORMATION
  Report Type: 
  Country: None (occurrence: None)
  Receive Date: 20101229
  Receipt Date: 20090901
  Transmission Date: 20110411
  Serious: Yes (Hospitalization, Other)
  Sender: FDA-Public Use
  Company Number: 2009SP023393

PATIENT
  Sex: Female

DRUGS (1)
  1. NUVARING [Suspect]
     Indication: PRODUCT USED FOR UNKNOWN INDICATION

REACTIONS (12)
  - AMENORRHOEA [None]
  - BIPOLAR DISORDER [None]
  - COAGULOPATHY [None]
  - CYSTITIS [None]
  - DEEP VEIN THROMBOSIS [None]
  - HIRSUTISM [None]
  - HYPOTHYROIDISM [None]
  - MENORRHAGIA [None]
  - PAIN [None]
  - PNEUMONIA [None]
  - POLYCYSTIC OVARIES [None]
  - PYELONEPHRITIS [None]
